FAERS Safety Report 10411395 (Version 1)
Quarter: 2014Q3

REPORT INFORMATION
  Report Type: Report from Study
  Country: US (occurrence: US)
  Receive Date: 20140827
  Receipt Date: 20140827
  Transmission Date: 20150326
  Serious: Yes (Other)
  Sender: FDA-Public Use
  Company Number: US-ROCHE-1453195

PATIENT
  Sex: Female
  Weight: 84.64 kg

DRUGS (9)
  1. TYLENOL [Concomitant]
     Active Substance: ACETAMINOPHEN
     Dosage: AS REQUIRED
     Route: 048
  2. VIVELLE DOT [Concomitant]
     Active Substance: ESTRADIOL
     Dosage: TWO DAYS A WEEK
     Route: 065
  3. ZOLOFT [Concomitant]
     Active Substance: SERTRALINE HYDROCHLORIDE
     Route: 048
  4. ANDROGEL [Concomitant]
     Active Substance: TESTOSTERONE
     Dosage: 3 DAYS A WEEK
     Route: 065
  5. MOTRIN [Concomitant]
     Active Substance: IBUPROFEN
     Indication: PAIN
     Dosage: AS NEEDED FOR PAIN
     Route: 048
  6. NUTROPIN AQ [Suspect]
     Active Substance: SOMATROPIN
     Indication: GROWTH HORMONE DEFICIENCY
     Route: 058
  7. CORTEF [Concomitant]
     Active Substance: HYDROCORTISONE
     Dosage: TAKE 2 TABS IN MORNING AND 1/2 TAB IN AFTERNOON
     Route: 048
  8. SYNTHROID [Concomitant]
     Active Substance: LEVOTHYROXINE SODIUM
     Route: 048
  9. FERROUS GLUCONATE [Concomitant]
     Active Substance: FERROUS GLUCONATE
     Dosage: (27 MG IRON)
     Route: 048

REACTIONS (17)
  - Weight increased [Unknown]
  - Pain [Unknown]
  - Nausea [Unknown]
  - Arthralgia [Unknown]
  - Increased tendency to bruise [Unknown]
  - Mood swings [Unknown]
  - Dizziness [Unknown]
  - Hair growth abnormal [Unknown]
  - Insomnia [Unknown]
  - Palpitations [Unknown]
  - Headache [Unknown]
  - Gastrooesophageal reflux disease [Unknown]
  - Hypertension [Unknown]
  - Chest pain [Unknown]
  - Hyperhidrosis [Unknown]
  - Constipation [Unknown]
  - Peripheral swelling [Unknown]
